FAERS Safety Report 10746257 (Version 1)
Quarter: 2015Q1

REPORT INFORMATION
  Report Type: Spontaneous
  Country: US (occurrence: US)
  Receive Date: 20150128
  Receipt Date: 20150128
  Transmission Date: 20150721
  Serious: No
  Sender: FDA-Public Use
  Company Number: US-TEVA-537056USA

PATIENT
  Age: 36 Year
  Sex: Female
  Weight: 50.85 kg

DRUGS (3)
  1. NETI-POT [Concomitant]
     Indication: NASAL CONGESTION
  2. PARAGARD T 380A [Suspect]
     Active Substance: COPPER
     Indication: CONTRACEPTION
     Route: 015
     Dates: start: 20150123
  3. HOMEOPATIC COLD MEDICINE [Concomitant]
     Indication: NASOPHARYNGITIS

REACTIONS (5)
  - Rash erythematous [Not Recovered/Not Resolved]
  - Urticaria [Not Recovered/Not Resolved]
  - Burning sensation [Not Recovered/Not Resolved]
  - Exposure during breast feeding [Unknown]
  - Hypersensitivity [Not Recovered/Not Resolved]

NARRATIVE: CASE EVENT DATE: 20150124
